FAERS Safety Report 9825311 (Version 1)
Quarter: 2013Q4

REPORT INFORMATION
  Report Type: Spontaneous
  Country: US (occurrence: None)
  Receive Date: 20131028
  Receipt Date: 20131028
  Transmission Date: 20140711
  Serious: Yes (Other)
  Sender: FDA-Public Use
  Company Number: 2013US002207

PATIENT
  Age: 45 Year
  Sex: Female

DRUGS (1)
  1. ICLUSIG (PONATINIB) TABLET, 45MG [Suspect]
     Indication: NEOPLASM MALIGNANT
     Route: 048
     Dates: start: 201305

REACTIONS (2)
  - Haemorrhoids [None]
  - Constipation [None]
